FAERS Safety Report 5305596-3 (Version None)
Quarter: 2007Q2

REPORT INFORMATION
  Report Type: 
  Country: None (occurrence: None)
  Receive Date: 20070419
  Receipt Date: 20070419
  Transmission Date: 20071010
  Serious: Yes (Disabling)
  Sender: FDA-Public Use
  Company Number: None

PATIENT
  Age: 35 Year
  Sex: Female
  Weight: 58.9676 kg

DRUGS (8)
  1. LEVAQUIN [Suspect]
     Indication: CYSTITIS
     Dosage: UNSURE, IN ER AT THE TIME   IV DRIP;  500 MG 7 DAYS  PO
     Route: 041
     Dates: start: 20060427, end: 20060428
  2. LEVAQUIN [Suspect]
     Indication: URINARY BLADDER HAEMORRHAGE
     Dosage: UNSURE, IN ER AT THE TIME   IV DRIP;  500 MG 7 DAYS  PO
     Route: 041
     Dates: start: 20060427, end: 20060428
  3. LEVAQUIN [Suspect]
     Indication: URINARY TRACT INFECTION
     Dosage: UNSURE, IN ER AT THE TIME   IV DRIP;  500 MG 7 DAYS  PO
     Route: 041
     Dates: start: 20060427, end: 20060428
  4. LEVAQUIN [Suspect]
     Indication: CYSTITIS
     Dosage: UNSURE, IN ER AT THE TIME   IV DRIP;  500 MG 7 DAYS  PO
     Route: 041
     Dates: start: 20060429, end: 20060502
  5. LEVAQUIN [Suspect]
     Indication: URINARY BLADDER HAEMORRHAGE
     Dosage: UNSURE, IN ER AT THE TIME   IV DRIP;  500 MG 7 DAYS  PO
     Route: 041
     Dates: start: 20060429, end: 20060502
  6. LEVAQUIN [Suspect]
     Indication: URINARY TRACT INFECTION
     Dosage: UNSURE, IN ER AT THE TIME   IV DRIP;  500 MG 7 DAYS  PO
     Route: 041
     Dates: start: 20060429, end: 20060502
  7. VALIUM [Concomitant]
  8. VALTREX [Concomitant]

REACTIONS (16)
  - ADVERSE DRUG REACTION [None]
  - AGORAPHOBIA [None]
  - ANXIETY [None]
  - ARTHRALGIA [None]
  - BURNING SENSATION [None]
  - FEAR [None]
  - FEELING OF DESPAIR [None]
  - HEART RATE INCREASED [None]
  - HYPOAESTHESIA FACIAL [None]
  - MENTAL DISORDER [None]
  - PAIN [None]
  - PANIC REACTION [None]
  - PARANOIA [None]
  - SENSORY DISTURBANCE [None]
  - SUICIDAL IDEATION [None]
  - THINKING ABNORMAL [None]
